FAERS Safety Report 9182201 (Version 1)
Quarter: 2012Q4

REPORT INFORMATION
  Report Type: 
  Country: US (occurrence: US)
  Receive Date: 20121030
  Receipt Date: 20121030
  Transmission Date: 20130627
  Serious: No
  Sender: FDA-Public Use
  Company Number: US-GLAXOSMITHKLINE-A0946006A

PATIENT
  Age: 59 Year
  Sex: Male

DRUGS (3)
  1. SEREVENT [Suspect]
     Indication: BRONCHIAL HYPERREACTIVITY
     Dosage: 1PUFF Twice per day
     Route: 055
     Dates: start: 1991
  2. ALBUTEROL [Concomitant]
  3. UNSPECIFIED MEDICATIONS [Concomitant]

REACTIONS (2)
  - Drug ineffective [Unknown]
  - Product quality issue [Unknown]
